FAERS Safety Report 18110003 (Version 2)
Quarter: 2021Q2

REPORT INFORMATION
  Report Type: Spontaneous
  Country: US (occurrence: US)
  Receive Date: 20200804
  Receipt Date: 20210629
  Transmission Date: 20210717
  Serious: No
  Sender: FDA-Public Use
  Company Number: US-TEVA-2020-US-1810872

PATIENT
  Age: 46 Year
  Sex: Male

DRUGS (1)
  1. ATENOLOL. [Suspect]
     Active Substance: ATENOLOL
     Route: 065

REACTIONS (5)
  - Speech disorder [Unknown]
  - Feeding disorder [Unknown]
  - Urinary incontinence [Unknown]
  - Dysstasia [Unknown]
  - Eye disorder [Unknown]
